FAERS Safety Report 15541479 (Version 1)
Quarter: 2018Q4

REPORT INFORMATION
  Report Type: Spontaneous
  Country: US (occurrence: US)
  Receive Date: 20181017
  Receipt Date: 20181017
  Transmission Date: 20190205
  Serious: No
  Sender: FDA-Public Use
  Company Number: None

PATIENT
  Age: 27 Year
  Sex: Male

DRUGS (1)
  1. JADENU [Suspect]
     Active Substance: DEFERASIROX
     Route: 048
     Dates: start: 201804

REACTIONS (3)
  - Treatment noncompliance [None]
  - Therapy cessation [None]
  - Transfusion [None]

NARRATIVE: CASE EVENT DATE: 20181016
